FAERS Safety Report 5731110-4 (Version None)
Quarter: 2008Q2

REPORT INFORMATION
  Report Type: 
  Country: None (occurrence: None)
  Receive Date: 20080505
  Receipt Date: 20080426
  Transmission Date: 20081010
  Serious: Yes (Hospitalization)
  Sender: FDA-Public Use
  Company Number: CERZ-1000174

PATIENT
  Age: 16 Year
  Sex: Female
  Weight: 46 kg

DRUGS (6)
  1. CEREZYME [Suspect]
     Indication: GAUCHER'S DISEASE
     Dosage: 3600 U, QW, INTRAVENOUS
     Route: 042
     Dates: end: 20080301
  2. CEREZYME [Suspect]
     Dosage: 3000 U, QW, INTRAVENOUS
     Route: 042
  3. CEREZYME [Suspect]
     Dosage: 6000 U, QW, INTRAVENOUS
     Route: 042
  4. CEREZYME [Suspect]
     Dosage: 3000 U, QW, INTRAVENOUS
     Route: 042
  5. CEREZYME [Suspect]
     Dosage: 90 U/KG, QW, INTRAVENOUS
     Route: 042
     Dates: start: 20010801, end: 20020401
  6. CEREZYME [Suspect]
     Dosage: 2600 U, Q2W, INTRAVENOUS
     Route: 042
     Dates: start: 19970522, end: 20010801

REACTIONS (30)
  - AORTA HYPOPLASIA [None]
  - AORTIC CALCIFICATION [None]
  - AORTIC STENOSIS [None]
  - AORTIC VALVE INCOMPETENCE [None]
  - ARTHRALGIA [None]
  - CONTUSION [None]
  - GASTROINTESTINAL SOUNDS ABNORMAL [None]
  - HAEMODYNAMIC INSTABILITY [None]
  - HEART RATE DECREASED [None]
  - HEPATIC CIRRHOSIS [None]
  - HEPATITIS C [None]
  - HEPATITIS VIRAL [None]
  - HYPERREFLEXIA [None]
  - INTRA-ABDOMINAL HAEMORRHAGE [None]
  - LEFT VENTRICULAR DYSFUNCTION [None]
  - LEFT VENTRICULAR HYPERTROPHY [None]
  - MALAISE [None]
  - MITRAL VALVE PROLAPSE [None]
  - MITRAL VALVE STENOSIS [None]
  - NERVOUS SYSTEM DISORDER [None]
  - OEDEMA PERIPHERAL [None]
  - PERICARDIAL EFFUSION [None]
  - PORTAL HYPERTENSION [None]
  - POST PROCEDURAL COMPLICATION [None]
  - SINUS DISORDER [None]
  - SPLEEN DISORDER [None]
  - SPLENOMEGALY [None]
  - THROMBOSIS [None]
  - TRICUSPID VALVE INCOMPETENCE [None]
  - VOMITING [None]
